FAERS Safety Report 5733370-2 (Version None)
Quarter: 2008Q2

REPORT INFORMATION
  Report Type: 
  Country: None (occurrence: None)
  Receive Date: 20080509
  Receipt Date: 20080505
  Transmission Date: 20081010
  Serious: Yes (Other)
  Sender: FDA-Public Use
  Company Number: US-BAYER-200817820NA

PATIENT
  Age: 17 Year
  Sex: Female

DRUGS (1)
  1. YAZ [Suspect]
     Indication: CONTRACEPTION
     Route: 048
     Dates: start: 20071201, end: 20080309

REACTIONS (5)
  - HEADACHE [None]
  - NAUSEA [None]
  - PRURITUS GENERALISED [None]
  - SPINAL DISORDER [None]
  - TREMOR [None]
